FAERS Safety Report 10401734 (Version 4)
Quarter: 2014Q3

REPORT INFORMATION
  Report Type: Spontaneous
  Country: US (occurrence: US)
  Receive Date: 20140822
  Receipt Date: 20140908
  Transmission Date: 20150326
  Serious: Yes (Death)
  Sender: FDA-Public Use
  Company Number: US-JNJFOC-20140819165

PATIENT
  Age: 88 Year
  Sex: Female
  Weight: 72.76 kg

DRUGS (3)
  1. FISH OIL [Concomitant]
     Active Substance: FISH OIL
     Dosage: 3000 OR 4000 IU
     Route: 065
  2. XARELTO [Suspect]
     Active Substance: RIVAROXABAN
     Indication: ATRIAL FIBRILLATION
     Route: 048
     Dates: start: 20130722
  3. XARELTO [Suspect]
     Active Substance: RIVAROXABAN
     Indication: CEREBROVASCULAR ACCIDENT PROPHYLAXIS
     Route: 048
     Dates: start: 20130722

REACTIONS (1)
  - Haemorrhage intracranial [Fatal]

NARRATIVE: CASE EVENT DATE: 20140728
